FAERS Safety Report 14848902 (Version 1)
Quarter: 2018Q2

REPORT INFORMATION
  Report Type: Spontaneous
  Country: IT (occurrence: JP)
  Receive Date: 20180504
  Receipt Date: 20180504
  Transmission Date: 20180711
  Serious: Yes (Hospitalization)
  Sender: FDA-Public Use
  Company Number: IT-LEADIANT BIOSCIENCES INC-2013STPI000509

PATIENT
  Sex: Male

DRUGS (3)
  1. CARNITOR [Suspect]
     Active Substance: LEVOCARNITINE
     Dosage: 900 MG/DAY
     Route: 048
     Dates: start: 20120711, end: 20130401
  2. PRANLUKAST [Concomitant]
     Active Substance: PRANLUKAST
  3. CARNITOR [Suspect]
     Active Substance: LEVOCARNITINE
     Indication: VERY LONG-CHAIN ACYL-COENZYME A DEHYDROGENASE DEFICIENCY
     Dosage: 600 MG/DAY
     Route: 048
     Dates: start: 20120522, end: 20120710

REACTIONS (1)
  - Rhabdomyolysis [Recovered/Resolved]
